FAERS Safety Report 15200437 (Version 1)
Quarter: 2018Q3

REPORT INFORMATION
  Report Type: Report from Study
  Country: US (occurrence: US)
  Receive Date: 20180726
  Receipt Date: 20180726
  Transmission Date: 20181010
  Serious: Yes (Other)
  Sender: FDA-Public Use
  Company Number: US-ROCHE-2154575

PATIENT
  Sex: Female

DRUGS (6)
  1. KEPPRA [Concomitant]
     Active Substance: LEVETIRACETAM
     Route: 048
  2. AVONEX [Concomitant]
     Active Substance: INTERFERON BETA-1A
  3. ALEVE [Concomitant]
     Active Substance: NAPROXEN SODIUM
     Route: 065
  4. OCREVUS [Suspect]
     Active Substance: OCRELIZUMAB
     Indication: RELAPSING MULTIPLE SCLEROSIS
     Route: 065
     Dates: start: 201706
  5. OCREVUS [Suspect]
     Active Substance: OCRELIZUMAB
     Indication: MULTIPLE SCLEROSIS
     Dosage: ONGOING: NO
     Route: 065
     Dates: start: 201707
  6. OCREVUS [Suspect]
     Active Substance: OCRELIZUMAB
     Dosage: 2ND CYCLE
     Route: 065
     Dates: start: 201712

REACTIONS (5)
  - Anal incontinence [Unknown]
  - Hypoaesthesia [Not Recovered/Not Resolved]
  - Herpes zoster [Unknown]
  - Micturition urgency [Unknown]
  - Malaise [Not Recovered/Not Resolved]
